FAERS Safety Report 9753678 (Version 1)
Quarter: 2013Q4

REPORT INFORMATION
  Report Type: Spontaneous
  Country: US (occurrence: US)
  Receive Date: 20131213
  Receipt Date: 20131213
  Transmission Date: 20140711
  Serious: No
  Sender: FDA-Public Use
  Company Number: US-GILEAD-2009-0026142

PATIENT
  Age: 51 Year
  Sex: Male

DRUGS (7)
  1. LETAIRIS [Suspect]
     Indication: PULMONARY ARTERIAL HYPERTENSION
     Route: 048
     Dates: start: 20080822
  2. ADCIRCA [Concomitant]
  3. PROGRAF [Concomitant]
  4. METFORMIN [Concomitant]
  5. LASIX [Concomitant]
  6. ASA [Concomitant]
  7. OMEPRAZOLE [Concomitant]

REACTIONS (1)
  - Bronchitis [Unknown]
